FAERS Safety Report 25680857 (Version 1)
Quarter: 2025Q3

REPORT INFORMATION
  Report Type: Spontaneous
  Country: EU (occurrence: EU)
  Receive Date: 20250814
  Receipt Date: 20250814
  Transmission Date: 20251021
  Serious: Yes (Death)
  Sender: NOVARTIS
  Company Number: EU-002147023-NVSC2025DE125950

PATIENT

DRUGS (2)
  1. ALPELISIB [Suspect]
     Active Substance: ALPELISIB
     Indication: Sarcomatoid carcinoma
     Route: 065
  2. ALPELISIB [Suspect]
     Active Substance: ALPELISIB
     Indication: Transitional cell carcinoma

REACTIONS (4)
  - Sarcomatoid carcinoma [Fatal]
  - Transitional cell carcinoma [Fatal]
  - Malignant neoplasm progression [Fatal]
  - Off label use [Unknown]
